FAERS Safety Report 8298118-9 (Version None)
Quarter: 2012Q2

REPORT INFORMATION
  Report Type: 
  Country: None (occurrence: None)
  Receive Date: 20120419
  Receipt Date: 20120410
  Transmission Date: 20120825
  Serious: Yes (Disabling, Other)
  Sender: FDA-Public Use
  Company Number: JP-ASTRAZENECA-2008AP04228

PATIENT
  Age: 34 Year
  Sex: Female
  Weight: 51 kg

DRUGS (18)
  1. SOLACET F [Concomitant]
     Indication: FLUID REPLACEMENT
     Route: 042
     Dates: start: 20080523, end: 20080525
  2. XYLOCAINE [Concomitant]
     Indication: EPIDURAL ANAESTHESIA
     Route: 008
     Dates: start: 20080523, end: 20080523
  3. ATARAX [Concomitant]
     Indication: SEDATION
     Route: 041
     Dates: start: 20080523, end: 20080523
  4. MARCAINE HYDROCHLORIDE PRESERVATIVE FREE [Concomitant]
     Indication: SPINAL ANAESTHESIA
     Route: 029
     Dates: start: 20080523, end: 20080523
  5. FENTANYL [Concomitant]
     Indication: SPINAL ANAESTHESIA
     Route: 029
     Dates: start: 20080523, end: 20080523
  6. SOLACET D [Concomitant]
     Route: 042
     Dates: start: 20080524, end: 20080524
  7. VOLTAREN [Concomitant]
     Indication: ANALGESIC THERAPY
     Route: 054
     Dates: start: 20080523, end: 20080524
  8. PENTAZOCINE LACTATE [Concomitant]
     Indication: ANALGESIC THERAPY
     Route: 041
     Dates: start: 20080523, end: 20080523
  9. CEFOTIAM HYDROCHLORIDE [Concomitant]
     Route: 042
     Dates: start: 20080524, end: 20080525
  10. XYLOCAINE [Concomitant]
     Indication: ANALGESIC THERAPY
     Route: 008
     Dates: start: 20080524, end: 20080524
  11. ISOTONIC SODIUM CHLORIDE SOLUTION [Concomitant]
     Route: 008
     Dates: start: 20080524, end: 20080524
  12. ROPIVACAINE HYDROCHLORIDE [Suspect]
     Indication: ANALGESIC THERAPY
     Route: 008
     Dates: start: 20080523, end: 20080524
  13. SOLACET D [Concomitant]
     Indication: FLUID REPLACEMENT
     Route: 042
     Dates: start: 20080523, end: 20080523
  14. ISOTONIC SODIUM CHLORIDE SOLUTION [Concomitant]
     Indication: FLUID REPLACEMENT
     Route: 042
     Dates: start: 20080524, end: 20080525
  15. ROPIVACAINE HYDROCHLORIDE [Suspect]
     Route: 008
     Dates: start: 20080523, end: 20080524
  16. VOLTAREN [Concomitant]
     Route: 054
     Dates: start: 20080523, end: 20080523
  17. METENARIN [Concomitant]
     Indication: UTERINE CONTRACTIONS ABNORMAL
     Route: 042
     Dates: start: 20080523, end: 20080524
  18. CEFOTIAM HYDROCHLORIDE [Concomitant]
     Indication: INFECTION PROPHYLAXIS
     Route: 042
     Dates: start: 20080523, end: 20080523

REACTIONS (3)
  - ILLUSION [None]
  - MONOPLEGIA [None]
  - MOVEMENT DISORDER [None]
